FAERS Safety Report 5101173-8 (Version None)
Quarter: 2006Q3

REPORT INFORMATION
  Report Type: 
  Country: None (occurrence: None)
  Receive Date: 20060906
  Receipt Date: 20060823
  Transmission Date: 20061208
  Serious: Yes (Hospitalization)
  Sender: FDA-Public Use
  Company Number: 2006087670

PATIENT
  Age: 65 Year
  Sex: Male

DRUGS (3)
  1. LYRICA [Suspect]
     Indication: NERVE ROOT LESION
     Dosage: 300 MG (150 MG, 2 IN 1 D), ORAL
     Route: 048
     Dates: start: 20060201, end: 20060501
  2. IRBESARTAN [Concomitant]
  3. ALFUZOSIN (ALFUZOSIN) [Concomitant]

REACTIONS (4)
  - CLAVICLE FRACTURE [None]
  - FALL [None]
  - PAIN [None]
  - UPPER LIMB FRACTURE [None]
